FAERS Safety Report 7693924-3 (Version None)
Quarter: 2011Q3

REPORT INFORMATION
  Report Type: 
  Country: None (occurrence: None)
  Receive Date: 20110819
  Receipt Date: 20110810
  Transmission Date: 20111222
  Serious: Yes (Hospitalization)
  Sender: FDA-Public Use
  Company Number: US-JNJFOC-20110806719

PATIENT
  Sex: Female
  Weight: 56.7 kg

DRUGS (17)
  1. DURAGESIC-100 [Suspect]
     Indication: PAIN
     Route: 062
     Dates: start: 20110412
  2. CYMBALTA [Concomitant]
     Indication: DEPRESSION
     Route: 048
     Dates: start: 20110401, end: 20110801
  3. TRAZODONE HCL [Concomitant]
     Indication: SLEEP DISORDER
     Route: 048
  4. NORVASC [Concomitant]
     Indication: BLOOD PRESSURE
     Route: 048
  5. ZOLPIDEM [Concomitant]
     Indication: SLEEP DISORDER
     Route: 048
  6. PROTONIX [Concomitant]
     Indication: ULCER HAEMORRHAGE
     Route: 048
  7. AMITRIPTYLINE HCL [Concomitant]
     Indication: MIGRAINE
     Route: 048
  8. FIORICET [Concomitant]
     Indication: MIGRAINE
     Route: 048
  9. ASPIRIN [Concomitant]
     Indication: CARDIAC DISORDER
     Route: 048
  10. SEROQUEL [Concomitant]
     Indication: SLEEP DISORDER
     Route: 048
  11. CELEXA [Concomitant]
     Indication: DEPRESSION
     Route: 048
  12. PHENAZOPYRIDINE HCL TAB [Concomitant]
     Indication: DYSURIA
     Route: 048
  13. ZOFRAN [Concomitant]
     Indication: NAUSEA
     Route: 048
  14. LASIX [Concomitant]
     Indication: OEDEMA
     Route: 048
  15. BACTRIM [Concomitant]
     Indication: URINARY TRACT INFECTION
     Route: 048
  16. KLONOPIN [Concomitant]
     Indication: DEPRESSION
     Route: 048
  17. LACTULOSE [Concomitant]
     Indication: CONSTIPATION
     Route: 048

REACTIONS (5)
  - WRONG TECHNIQUE IN DRUG USAGE PROCESS [None]
  - FALL [None]
  - IMPAIRED GASTRIC EMPTYING [None]
  - PRODUCT QUALITY ISSUE [None]
  - BREAKTHROUGH PAIN [None]
